FAERS Safety Report 6456383-4 (Version None)
Quarter: 2009Q4

REPORT INFORMATION
  Report Type: 
  Country: None (occurrence: None)
  Receive Date: 20091125
  Receipt Date: 20091111
  Transmission Date: 20100525
  Serious: Yes (Hospitalization)
  Sender: FDA-Public Use
  Company Number: PHHY2009CL49769

PATIENT
  Age: 52 Year
  Sex: Male

DRUGS (1)
  1. LEPONEX [Suspect]
     Dosage: 12.5 MG PER DAY
     Dates: start: 20090401

REACTIONS (1)
  - SCHIZOPHRENIA [None]
